FAERS Safety Report 6169401-8 (Version None)
Quarter: 2009Q2

REPORT INFORMATION
  Report Type: 
  Country: None (occurrence: None)
  Receive Date: 20090424
  Receipt Date: 20090409
  Transmission Date: 20091009
  Serious: Yes (Hospitalization)
  Sender: FDA-Public Use
  Company Number: 2009S1006678

PATIENT
  Age: 80 Year
  Sex: Male
  Weight: 80 kg

DRUGS (8)
  1. ENALAPRIL MALEATE [Suspect]
     Indication: HYPERTENSION
     Dosage: (10 MG)  10 MG; ORAL
     Route: 048
     Dates: start: 19970101, end: 20080704
  2. ARCOXIA (ETORICOXIB) (90 MG) [Suspect]
     Indication: OSTEOLYSIS
     Dosage: 90 MG; ORAL
     Route: 048
     Dates: start: 20080601, end: 20080704
  3. TRIAMTEREN (TRIAMTERENE) (1 DF) [Suspect]
     Indication: HYPERTENSION
     Dosage: 1 DF; ORAL
     Route: 048
     Dates: start: 20040101, end: 20080704
  4. ISOSORBIDE DINITRATE [Concomitant]
  5. BISOPROLOL FUMARATE [Concomitant]
  6. SIMVASTATIN [Concomitant]
  7. FALITHROM [Concomitant]
  8. AMANTADINE HCL [Concomitant]

REACTIONS (5)
  - ATRIAL FIBRILLATION [None]
  - DRUG INTERACTION [None]
  - HUMERUS FRACTURE [None]
  - OSTEOLYSIS [None]
  - RENAL FAILURE ACUTE [None]
